FAERS Safety Report 10143801 (Version 2)
Quarter: 2014Q2

REPORT INFORMATION
  Report Type: Spontaneous
  Country: US (occurrence: US)
  Receive Date: 20140430
  Receipt Date: 20140604
  Transmission Date: 20141212
  Serious: Yes (Death, Hospitalization, Disabling, Other)
  Sender: FDA-Public Use
  Company Number: US-GLAXOSMITHKLINE-A1071314A

PATIENT
  Age: 70 Year
  Sex: Male
  Weight: 83.2 kg

DRUGS (4)
  1. MELPHALAN [Suspect]
     Indication: PLASMA CELL MYELOMA
     Dosage: 18MG SEE DOSAGE TEXT
     Route: 048
     Dates: start: 20100901, end: 20130820
  2. REVLIMID [Concomitant]
  3. BORTEZOMIB [Concomitant]
  4. CARFILZOMIB [Concomitant]

REACTIONS (4)
  - Plasma cell myeloma [Fatal]
  - Syncope [Not Recovered/Not Resolved]
  - Bone pain [Not Recovered/Not Resolved]
  - Spinal compression fracture [Not Recovered/Not Resolved]
